FAERS Safety Report 23211551 (Version 1)
Quarter: 2023Q4

REPORT INFORMATION
  Report Type: Spontaneous
  Country: US (occurrence: None)
  Receive Date: 20231120
  Receipt Date: 20231120
  Transmission Date: 20240109
  Serious: No
  Sender: FDA-Public Use
  Company Number: None

PATIENT
  Age: 7 Week
  Sex: Female
  Weight: 4.75 kg

DRUGS (1)
  1. BEYFORTUS [Suspect]
     Active Substance: NIRSEVIMAB-ALIP
     Dosage: FREQUENCY : ONCE;?
     Route: 030

REACTIONS (2)
  - Incorrect dose administered [None]
  - Prescribed overdose [None]

NARRATIVE: CASE EVENT DATE: 20231104
